FAERS Safety Report 9837909 (Version 2)
Quarter: 2014Q1

REPORT INFORMATION
  Report Type: Spontaneous
  Country: FR (occurrence: FR)
  Receive Date: 20140123
  Receipt Date: 20140123
  Transmission Date: 20141002
  Serious: Yes (Hospitalization, Other)
  Sender: FDA-Public Use
  Company Number: FR-PFIZER INC-2014017994

PATIENT
  Age: 47 Year
  Sex: Female

DRUGS (7)
  1. LYRICA [Suspect]
     Indication: MULTIPLE SCLEROSIS
     Dosage: 100 MG, 3X/DAY
     Route: 048
  2. ATARAX [Suspect]
     Indication: DEPRESSION
     Dosage: 25 MG, DAILY
     Route: 048
  3. FAMPYRA [Suspect]
     Indication: MULTIPLE SCLEROSIS
     Dosage: 10 MG, 2X/DAY
     Route: 048
     Dates: start: 201310, end: 20131019
  4. CYMBALTA [Suspect]
     Indication: DEPRESSION
     Dosage: 90 MG, DAILY
     Route: 048
  5. COPAXONE [Concomitant]
     Indication: MULTIPLE SCLEROSIS
     Dosage: 20 MG, DAILY
     Route: 058
  6. VESICARE [Concomitant]
     Dosage: 1 DF, DAILY
  7. CERIS [Concomitant]
     Dosage: 20 MG, DAILY

REACTIONS (8)
  - Off label use [Unknown]
  - Confusional state [Recovered/Resolved]
  - Abnormal behaviour [Unknown]
  - Speech disorder [Unknown]
  - Pyelonephritis [Unknown]
  - Renal failure acute [Unknown]
  - Disorientation [Unknown]
  - Inflammation [Unknown]
